FAERS Safety Report 10196962 (Version 2)
Quarter: 2014Q2

REPORT INFORMATION
  Report Type: Spontaneous
  Country: US (occurrence: US)
  Receive Date: 20140527
  Receipt Date: 20140630
  Transmission Date: 20141212
  Serious: Yes (Other)
  Sender: FDA-Public Use
  Company Number: US-PFIZER INC-2014144175

PATIENT
  Age: 70 Year
  Sex: Female
  Weight: 104 kg

DRUGS (5)
  1. DAYPRO [Suspect]
     Indication: PAIN
     Dosage: 600 MG, 2X/DAY
     Route: 048
     Dates: start: 1995
  2. SINGULAIR [Concomitant]
     Indication: HYPERSENSITIVITY
     Dosage: UNK
  3. SINGULAIR [Concomitant]
     Indication: ASTHMA
  4. ACIPHEX [Concomitant]
     Dosage: UNK
  5. CHLORZOXAZONE [Concomitant]
     Dosage: UNK

REACTIONS (5)
  - Therapeutic response changed [Unknown]
  - Multiple sclerosis [Unknown]
  - Arthritis [Unknown]
  - Peripheral swelling [Unknown]
  - Pain in extremity [Unknown]
